FAERS Safety Report 21947689 (Version 1)
Quarter: 2023Q1

REPORT INFORMATION
  Report Type: Report from Study
  Country: CO (occurrence: CO)
  Receive Date: 20230203
  Receipt Date: 20230203
  Transmission Date: 20230418
  Serious: Yes (Death)
  Sender: FDA-Public Use
  Company Number: CO-JNJFOC-20230156090

PATIENT
  Age: 79 Year
  Sex: Male
  Weight: 56 kg

DRUGS (1)
  1. IMBRUVICA [Suspect]
     Active Substance: IBRUTINIB
     Indication: Chronic lymphocytic leukaemia
     Route: 048
     Dates: start: 20221015, end: 20221116

REACTIONS (1)
  - Death [Fatal]

NARRATIVE: CASE EVENT DATE: 20230126
